FAERS Safety Report 8379894-3 (Version None)
Quarter: 2012Q2

REPORT INFORMATION
  Report Type: 
  Country: None (occurrence: None)
  Receive Date: 20120523
  Receipt Date: 20120517
  Transmission Date: 20120825
  Serious: Yes (Hospitalization, Other)
  Sender: FDA-Public Use
  Company Number: BR-PFIZER INC-2012121082

PATIENT
  Age: 60 Year
  Sex: Female

DRUGS (3)
  1. INDAPAMIDE [Concomitant]
     Dosage: UNK
     Dates: start: 20070101
  2. XALATAN [Suspect]
     Indication: GLAUCOMA
     Dosage: 3 UG (ONE DROP IN EACH EYE), 1X/DAY
     Route: 047
  3. DIOVAN HCT [Concomitant]
     Dosage: UNK
     Dates: start: 20070101

REACTIONS (2)
  - OVARIAN NEOPLASM [None]
  - THYROID DISORDER [None]
